FAERS Safety Report 10250046 (Version 2)
Quarter: 2014Q3

REPORT INFORMATION
  Report Type: Spontaneous
  Country: US (occurrence: US)
  Receive Date: 20140620
  Receipt Date: 20140805
  Transmission Date: 20150326
  Serious: Yes (Other)
  Sender: FDA-Public Use
  Company Number: US-BRISTOL-MYERS SQUIBB COMPANY-20605762

PATIENT
  Sex: Male

DRUGS (1)
  1. ELIQUIS [Suspect]
     Active Substance: APIXABAN
     Route: 048

REACTIONS (5)
  - Arthralgia [Unknown]
  - Myalgia [Unknown]
  - Pruritus [Unknown]
  - Gastric neoplasm [Unknown]
  - Blood glucose increased [Unknown]
